FAERS Safety Report 9948939 (Version 4)
Quarter: 2014Q2

REPORT INFORMATION
  Report Type: Report from Study
  Country: DE (occurrence: DE)
  Receive Date: 20140304
  Receipt Date: 20140623
  Transmission Date: 20141212
  Serious: Yes (Hospitalization)
  Sender: FDA-Public Use
  Company Number: DE-ABBVIE-14P-062-1206322-00

PATIENT
  Sex: Male

DRUGS (9)
  1. NORVIR [Suspect]
     Indication: HIV INFECTION
     Route: 048
     Dates: start: 20100726
  2. MARAVIROC [Concomitant]
     Indication: HIV INFECTION
     Dates: start: 20100726
  3. ISENTRESS [Concomitant]
     Indication: HIV INFECTION
     Dates: start: 20100726
  4. TRUVADA [Concomitant]
     Indication: HIV INFECTION
     Dates: start: 20100726
  5. DARUNAVIR [Concomitant]
     Indication: HIV INFECTION
     Dates: start: 20100726
  6. VOTUM [Concomitant]
     Indication: PRODUCT USED FOR UNKNOWN INDICATION
     Dates: start: 20101201, end: 20131114
  7. VOTUM [Concomitant]
     Dates: start: 20131115, end: 20140106
  8. VOTUM [Concomitant]
     Dates: start: 20140107
  9. UNKNOW MEDICATION [Concomitant]
     Indication: BLOOD PRESSURE
     Dosage: DOSE INCREASED

REACTIONS (2)
  - Fatigue [Recovered/Resolved]
  - Hypertension [Unknown]
